FAERS Safety Report 18833408 (Version 1)
Quarter: 2021Q1

REPORT INFORMATION
  Report Type: Spontaneous
  Country: US (occurrence: US)
  Receive Date: 20210202
  Receipt Date: 20210202
  Transmission Date: 20210419
  Serious: Yes (Hospitalization)
  Sender: FDA-Public Use
  Company Number: None

PATIENT
  Age: 76 Year
  Sex: Male

DRUGS (1)
  1. TERAZOSIN (TERAZOSIN HCL 10MG CAP) ?INCOMPLETE TRANSMISSION [Suspect]
     Active Substance: TERAZOSIN HYDROCHLORIDE

REACTIONS (1)
  - Dizziness [None]

NARRATIVE: CASE EVENT DATE: 20201018
